FAERS Safety Report 4615190-5 (Version None)
Quarter: 2005Q1

REPORT INFORMATION
  Report Type: 
  Country: None (occurrence: None)
  Receive Date: 20050322
  Receipt Date: 20040303
  Transmission Date: 20050727
  Serious: Yes (Death, Hospitalization)
  Sender: FDA-Public Use
  Company Number: PHHO2004GB03329

PATIENT
  Age: 50 Year
  Sex: Male

DRUGS (11)
  1. COTRIM [Concomitant]
  2. FRUSEMIDE [Concomitant]
  3. RANITIDINE [Concomitant]
  4. ASPIRIN [Concomitant]
  5. ATENOLOL [Concomitant]
  6. BENDROFLUAZIDE [Concomitant]
  7. DOXAZOSIN [Concomitant]
  8. PARACETAMOL [Concomitant]
  9. FTY720 VS MYCOPHENOLATE MOFETIL [Suspect]
     Indication: RENAL TRANSPLANT
     Dosage: CODE NOT BROKEN
     Route: 048
     Dates: start: 20040221, end: 20040510
  10. NEORAL [Suspect]
     Indication: RENAL TRANSPLANT
     Dosage: 175 MG, BID
     Route: 048
     Dates: start: 20040221
  11. PREDNISOLONE [Concomitant]
     Indication: RENAL TRANSPLANT
     Dosage: 30 MG, QD
     Route: 048
     Dates: start: 20040221

REACTIONS (17)
  - ASPERGILLOSIS [None]
  - BLOOD CREATININE INCREASED [None]
  - C-REACTIVE PROTEIN [None]
  - CANDIDIASIS [None]
  - CHILLS [None]
  - CONVULSION [None]
  - DECREASED APPETITE [None]
  - GRAFT DYSFUNCTION [None]
  - HYPOTENSION [None]
  - KIDNEY TRANSPLANT REJECTION [None]
  - NEPHRECTOMY [None]
  - PANCREATITIS [None]
  - PERITONITIS [None]
  - PNEUMOTHORAX [None]
  - RENAL INFARCT [None]
  - THERAPEUTIC AGENT TOXICITY [None]
  - WHITE BLOOD CELL COUNT INCREASED [None]
